FAERS Safety Report 8465319-6 (Version None)
Quarter: 2012Q2

REPORT INFORMATION
  Report Type: 
  Country: None (occurrence: None)
  Receive Date: 20120626
  Receipt Date: 20120618
  Transmission Date: 20120825
  Serious: Yes (Hospitalization)
  Sender: FDA-Public Use
  Company Number: US-BAYER-2012-061269

PATIENT
  Age: 32 Year
  Sex: Female
  Weight: 56.689 kg

DRUGS (8)
  1. ACETAMINOPHEN [Concomitant]
     Dosage: UNK UNK, PRN
  2. GAS [Concomitant]
  3. DROSPIRENONE AND ETHINYL ESTRADIOL [Suspect]
  4. YASMIN [Suspect]
     Indication: CONTRACEPTION
  5. LORTAB [Concomitant]
     Route: 048
  6. YAZ [Suspect]
     Indication: CONTRACEPTION
     Dosage: UNK
     Dates: start: 20071008
  7. TRIAMCINOLONE [Concomitant]
     Dosage: 0.1 % CREAM
     Route: 061
  8. AMITRIPTYLINE HCL [Concomitant]
     Dosage: 25 MG, UNK
     Route: 048

REACTIONS (1)
  - DEEP VEIN THROMBOSIS [None]
